FAERS Safety Report 4961058-4 (Version None)
Quarter: 2006Q2

REPORT INFORMATION
  Report Type: 
  Country: None (occurrence: None)
  Receive Date: 20060403
  Receipt Date: 20060324
  Transmission Date: 20061013
  Serious: Yes (Hospitalization)
  Sender: FDA-Public Use
  Company Number: 2006UW05253

PATIENT
  Age: 78 Year
  Sex: Female

DRUGS (10)
  1. TOPROL-XL [Suspect]
     Indication: HYPERTENSION
     Route: 048
     Dates: start: 20030101
  2. TOPROL-XL [Suspect]
     Route: 048
  3. PLAVIX [Concomitant]
  4. COZAAR [Concomitant]
  5. FOLTEX [Concomitant]
  6. OMEGA 3 [Concomitant]
  7. VITAMIN D [Concomitant]
  8. OTHER NATURAL SUPPLEMENTS [Concomitant]
  9. MAGNESIUM [Concomitant]
  10. ASPIRIN [Concomitant]

REACTIONS (6)
  - CONSTIPATION [None]
  - DIARRHOEA [None]
  - FATIGUE [None]
  - FEELING ABNORMAL [None]
  - MYALGIA [None]
  - UNEVALUABLE EVENT [None]
